FAERS Safety Report 16760693 (Version 1)
Quarter: 2019Q3

REPORT INFORMATION
  Report Type: Spontaneous
  Country: CN (occurrence: CN)
  Receive Date: 20190830
  Receipt Date: 20190830
  Transmission Date: 20191005
  Serious: Yes (Life-Threatening, Disabling, Other)
  Sender: FDA-Public Use
  Company Number: CN-JNJFOC-20190836991

PATIENT
  Age: 94 Year
  Sex: Female
  Weight: 75 kg

DRUGS (5)
  1. RIVAROXABAN [Suspect]
     Active Substance: RIVAROXABAN
     Indication: DEEP VEIN THROMBOSIS
     Dosage: 10 MG, QD
     Route: 048
     Dates: start: 20190702, end: 20190710
  2. RIVAROXABAN [Suspect]
     Active Substance: RIVAROXABAN
     Dosage: 10 MG, QD
     Route: 048
     Dates: start: 20190712, end: 20190719
  3. FLURBIPROFEN AXETIL [Suspect]
     Active Substance: FLURBIPROFEN AXETIL
     Dosage: 50 MG, QD
     Route: 042
     Dates: start: 20190712, end: 20190712
  4. FLURBIPROFEN AXETIL [Suspect]
     Active Substance: FLURBIPROFEN AXETIL
     Dosage: 50 MG, BID
     Route: 042
     Dates: start: 20190716, end: 20190718
  5. FLURBIPROFEN AXETIL [Suspect]
     Active Substance: FLURBIPROFEN AXETIL
     Indication: FEMORAL NECK FRACTURE
     Dosage: 50 MG, BID
     Route: 042
     Dates: start: 20190701, end: 20190707

REACTIONS (6)
  - Arrhythmia [Recovered/Resolved]
  - Small intestinal haemorrhage [Not Recovered/Not Resolved]
  - Cardiac failure [Recovering/Resolving]
  - Somnolence [Unknown]
  - Labelled drug-drug interaction medication error [Unknown]
  - Blood loss anaemia [Not Recovered/Not Resolved]

NARRATIVE: CASE EVENT DATE: 201907
